FAERS Safety Report 6955575-5 (Version None)
Quarter: 2010Q3

REPORT INFORMATION
  Report Type: 
  Country: None (occurrence: None)
  Receive Date: 20100826
  Receipt Date: 20100826
  Transmission Date: 20110219
  Serious: Yes (Life-Threatening, Hospitalization)
  Sender: FDA-Public Use
  Company Number: None

PATIENT
  Sex: Male
  Weight: 83.9154 kg

DRUGS (1)
  1. BACTRIM DS [Suspect]
     Indication: ACCIDENTAL EXPOSURE
     Dosage: 2 TABLETS ONCE PO
     Route: 048
     Dates: start: 20100814, end: 20100814

REACTIONS (4)
  - ACCIDENTAL EXPOSURE [None]
  - DRUG HYPERSENSITIVITY [None]
  - STEVENS-JOHNSON SYNDROME [None]
  - WRONG DRUG ADMINISTERED [None]
